FAERS Safety Report 9965067 (Version 1)
Quarter: 2014Q1

REPORT INFORMATION
  Report Type: Report from Study
  Country: US (occurrence: US)
  Receive Date: 20140305
  Receipt Date: 20140305
  Transmission Date: 20141002
  Serious: No
  Sender: FDA-Public Use
  Company Number: US-ABBVIE-13P-163-1127806-00

PATIENT
  Age: 44 Year
  Sex: Female

DRUGS (6)
  1. HUMIRA [Suspect]
     Indication: CROHN^S DISEASE
     Dates: start: 20130402
  2. PENTASA [Concomitant]
     Indication: CROHN^S DISEASE
     Route: 048
  3. LYCINE [Concomitant]
     Indication: ORAL HERPES
     Dosage: 1000 MG 1 DAILY
     Route: 048
  4. RED YEAST RICE [Concomitant]
     Indication: BLOOD CHOLESTEROL INCREASED
     Dosage: 1200 MG DAILY
  5. VITAMIN B 12 [Concomitant]
     Indication: VITAMIN SUPPLEMENTATION
     Dosage: 1 DAILY
     Route: 060
  6. ASA [Concomitant]
     Indication: THROMBOSIS PROPHYLAXIS
     Dosage: 81 MG 1 DAILY
     Route: 048

REACTIONS (1)
  - Urticaria [Recovered/Resolved]
